FAERS Safety Report 7212209-2 (Version None)
Quarter: 2010Q4

REPORT INFORMATION
  Report Type: 
  Country: None (occurrence: None)
  Receive Date: 20101227
  Receipt Date: 20101214
  Transmission Date: 20110411
  Serious: Yes (Hospitalization)
  Sender: FDA-Public Use
  Company Number: 783095

PATIENT
  Age: 14 Year
  Sex: Female

DRUGS (10)
  1. CYTARABINE [Suspect]
     Indication: ACUTE MYELOID LEUKAEMIA
     Dosage: INTRAVENOUS,
     Route: 042
  2. CYTARABINE [Suspect]
     Dosage: INTRATHECAL
     Route: 037
  3. IDARUBICIN [Suspect]
     Indication: ACUTE MYELOID LEUKAEMIA
  4. ETOPOSIDE [Suspect]
     Indication: ACUTE MYELOID LEUKAEMIA
  5. VORICONAZOLE [Suspect]
     Indication: BRONCHOPULMONARY ASPERGILLOSIS
  6. VORICONAZOLE [Suspect]
     Indication: FEBRILE NEUTROPENIA
  7. MEROPENEM [Suspect]
     Indication: BRONCHOPULMONARY ASPERGILLOSIS
  8. MEROPENEM [Suspect]
     Indication: FEBRILE NEUTROPENIA
  9. METRONIDAZOLE [Suspect]
     Indication: BRONCHOPULMONARY ASPERGILLOSIS
  10. METRONIDAZOLE [Suspect]
     Indication: FEBRILE NEUTROPENIA

REACTIONS (7)
  - BLOOD ALBUMIN DECREASED [None]
  - BRONCHOPULMONARY ASPERGILLOSIS [None]
  - CONVULSION [None]
  - FEBRILE NEUTROPENIA [None]
  - MUSCULAR WEAKNESS [None]
  - REVERSIBLE POSTERIOR LEUKOENCEPHALOPATHY SYNDROME [None]
  - VISUAL IMPAIRMENT [None]
